FAERS Safety Report 24531093 (Version 1)
Quarter: 2024Q4

REPORT INFORMATION
  Report Type: Spontaneous
  Country: JP (occurrence: JP)
  Receive Date: 20241022
  Receipt Date: 20241022
  Transmission Date: 20250115
  Serious: Yes (Death, Other)
  Sender: AMGEN
  Company Number: JP-KYOWAKIRIN-2024KK023052

PATIENT
  Age: 10 Year
  Sex: Female

DRUGS (29)
  1. FILGRASTIM [Suspect]
     Active Substance: FILGRASTIM
     Indication: Product used for unknown indication
     Dosage: 150 MG
     Route: 065
     Dates: start: 20230720, end: 20230724
  2. FENTANYL [Suspect]
     Active Substance: FENTANYL
     Indication: Cancer pain
     Dosage: 0.5 MG
     Route: 062
     Dates: start: 20230718, end: 20230806
  3. Oxinorm [Concomitant]
     Indication: Breakthrough pain
     Dosage: UNK
     Route: 065
     Dates: start: 20230718
  4. NAPROXEN SODIUM [Concomitant]
     Active Substance: NAPROXEN SODIUM
     Indication: Product used for unknown indication
     Dosage: 300 MG
     Route: 048
     Dates: start: 20230713, end: 20230724
  5. SULFAMETHOXAZOLE\TRIMETHOPRIM [Concomitant]
     Active Substance: SULFAMETHOXAZOLE\TRIMETHOPRIM
     Indication: Prophylaxis
     Dosage: 1.5 DF
     Route: 048
     Dates: end: 20230806
  6. FEBUXOSTAT [Concomitant]
     Active Substance: FEBUXOSTAT
     Indication: Product used for unknown indication
     Dosage: 20 MG
     Route: 048
     Dates: start: 20230721, end: 20230726
  7. MAGNESIUM OXIDE [Concomitant]
     Active Substance: MAGNESIUM OXIDE
     Indication: Product used for unknown indication
     Dosage: 990 MG
     Route: 048
     Dates: end: 20230831
  8. LANSOPRAZOLE [Concomitant]
     Active Substance: LANSOPRAZOLE
     Indication: Prophylaxis
     Dosage: 15 MG
     Route: 048
     Dates: start: 20230720, end: 20230815
  9. LORAZEPAM [Concomitant]
     Active Substance: LORAZEPAM
     Indication: Product used for unknown indication
     Dosage: 0.5 MG
     Route: 048
     Dates: start: 20230727
  10. NIFEDIPINE [Concomitant]
     Active Substance: NIFEDIPINE
     Indication: Product used for unknown indication
     Dosage: 30 MG, PRN
     Route: 048
     Dates: start: 20230727
  11. LOXOPROFEN [Concomitant]
     Active Substance: LOXOPROFEN
     Indication: Cancer pain
     Dosage: 60 MG, PRN
     Route: 048
     Dates: start: 20230717, end: 20230718
  12. MICAFUNGIN SODIUM [Concomitant]
     Active Substance: MICAFUNGIN SODIUM
     Indication: Product used for unknown indication
     Dosage: 150 MG
     Route: 041
  13. ACETAMINOPHEN [Concomitant]
     Active Substance: ACETAMINOPHEN
     Indication: Cancer pain
     Dosage: 350 MG, PRN
     Route: 042
  14. METHOTREXATE [Concomitant]
     Active Substance: METHOTREXATE
     Indication: Acute myeloid leukaemia
     Dosage: 12 MG
     Route: 028
     Dates: start: 20230720, end: 20230720
  15. CYTARABINE [Concomitant]
     Active Substance: CYTARABINE
     Indication: Acute myeloid leukaemia
     Dosage: 30 MG
     Route: 028
     Dates: start: 20230720, end: 20230720
  16. HYDROCORTISONE [Concomitant]
     Active Substance: HYDROCORTISONE
     Indication: Acute myeloid leukaemia
     Dosage: 25 MG
     Route: 028
     Dates: start: 20230720, end: 20230720
  17. KETALAR [Concomitant]
     Active Substance: KETAMINE HYDROCHLORIDE
     Indication: Analgesic therapy
     Dosage: 20 MG, PRN
     Route: 042
     Dates: start: 20230720, end: 20230720
  18. MIDAZOLAM [Concomitant]
     Active Substance: MIDAZOLAM
     Indication: Analgesic therapy
     Dosage: 10 MG, PRN
     Route: 065
     Dates: start: 20230720, end: 20230720
  19. CEFEPIME [Concomitant]
     Active Substance: CEFEPIME HYDROCHLORIDE
     Indication: Product used for unknown indication
     Dosage: 3900 MG
     Route: 042
  20. HYDROXYZINE HYDROCHLORIDE [Concomitant]
     Active Substance: HYDROXYZINE HYDROCHLORIDE
     Indication: Product used for unknown indication
     Dosage: 25 MG, PRN
     Route: 065
  21. FUROSEMIDE [Concomitant]
     Active Substance: FUROSEMIDE
     Indication: Product used for unknown indication
     Dosage: 13 MG, PRN
     Route: 065
     Dates: start: 20230728
  22. VANCOMYCIN [Concomitant]
     Active Substance: VANCOMYCIN
     Indication: Product used for unknown indication
     Dosage: 2000 MG
     Route: 041
     Dates: start: 20230728
  23. SOLU-MEDROL [Concomitant]
     Active Substance: METHYLPREDNISOLONE SODIUM SUCCINATE
     Indication: Product used for unknown indication
     Dosage: 120 MG
     Route: 042
     Dates: start: 20230720, end: 20230724
  24. OMEPRAZOLE [Concomitant]
     Active Substance: OMEPRAZOLE
     Indication: Prophylaxis
     Dosage: 26 MG
     Route: 065
     Dates: start: 20230729, end: 20230802
  25. FLUDARA [Concomitant]
     Active Substance: FLUDARABINE PHOSPHATE
     Indication: Product used for unknown indication
     Dosage: 31 MG
     Route: 042
     Dates: start: 20230720, end: 20230724
  26. CYTARABINE [Concomitant]
     Active Substance: CYTARABINE
     Indication: Product used for unknown indication
     Dosage: 2 G
     Route: 065
     Dates: start: 20230720, end: 20230724
  27. IDAMYCIN [Concomitant]
     Active Substance: IDARUBICIN HYDROCHLORIDE
     Indication: Product used for unknown indication
     Dosage: 10 MG
     Route: 065
     Dates: start: 20230724
  28. GRANISETRON [Concomitant]
     Active Substance: GRANISETRON
     Indication: Product used for unknown indication
     Dosage: 2 MG
     Route: 042
     Dates: start: 20230720, end: 20230725
  29. MYLOTARG [Concomitant]
     Active Substance: GEMTUZUMAB OZOGAMICIN
     Indication: Product used for unknown indication
     Dosage: 3 MG
     Route: 041
     Dates: start: 20230725

REACTIONS (2)
  - Multiple organ dysfunction syndrome [Fatal]
  - Acute myeloid leukaemia [Fatal]

NARRATIVE: CASE EVENT DATE: 20230911
